FAERS Safety Report 6562848-7 (Version None)
Quarter: 2010Q1

REPORT INFORMATION
  Report Type: 
  Country: None (occurrence: None)
  Receive Date: 20100130
  Receipt Date: 20091124
  Transmission Date: 20100710
  Serious: No
  Sender: FDA-Public Use
  Company Number: US-ABBOTT-09P-163-0610569-00

PATIENT
  Sex: Female
  Weight: 98.972 kg

DRUGS (2)
  1. HUMIRA [Suspect]
     Indication: COLITIS ULCERATIVE
     Dates: start: 20091010, end: 20091124
  2. HUMIRA [Suspect]
     Dates: start: 20091124

REACTIONS (1)
  - COLITIS ULCERATIVE [None]
